FAERS Safety Report 5848347-6 (Version None)
Quarter: 2008Q3

REPORT INFORMATION
  Report Type: 
  Country: None (occurrence: None)
  Receive Date: 20080814
  Receipt Date: 20080814
  Transmission Date: 20090109
  Serious: Yes (Life-Threatening)
  Sender: FDA-Public Use
  Company Number: None

PATIENT
  Age: 51 Year
  Sex: Female

DRUGS (2)
  1. NEULASTA [Suspect]
     Indication: NEUTROPENIA
     Dosage: 6MG  X1  SQ
     Route: 058
     Dates: start: 20080723, end: 20080723
  2. NEULASTA [Suspect]
     Indication: PROPHYLAXIS
     Dosage: 6MG  X1  SQ
     Route: 058
     Dates: start: 20080723, end: 20080723

REACTIONS (4)
  - ABDOMINAL PAIN UPPER [None]
  - NAUSEA [None]
  - ORTHOSTATIC HYPOTENSION [None]
  - VOMITING [None]
